FAERS Safety Report 4279252-7 (Version None)
Quarter: 2004Q1

REPORT INFORMATION
  Report Type: 
  Country: None (occurrence: None)
  Receive Date: 20040127
  Receipt Date: 20040116
  Transmission Date: 20041129
  Serious: Yes (Other)
  Sender: FDA-Public Use
  Company Number: PHFR2004GB00612

PATIENT
  Age: 40 Year
  Sex: Male

DRUGS (1)
  1. CLOZARIL [Suspect]
     Indication: SCHIZOPHRENIA
     Dosage: 450 MG/DAY
     Route: 048
     Dates: start: 20021107

REACTIONS (7)
  - CARDIOMEGALY [None]
  - DYSPNOEA [None]
  - GLUCOSE URINE PRESENT [None]
  - MYOCARDITIS [None]
  - OVERWEIGHT [None]
  - PROTEINURIA [None]
  - TACHYCARDIA [None]
